FAERS Safety Report 10442184 (Version 2)
Quarter: 2014Q3

REPORT INFORMATION
  Report Type: Spontaneous
  Country: IL (occurrence: IL)
  Receive Date: 20140909
  Receipt Date: 20140909
  Transmission Date: 20150326
  Serious: Yes (Other)
  Sender: FDA-Public Use
  Company Number: IL-WATSON-2014-18506

PATIENT
  Sex: Female

DRUGS (1)
  1. EMLA [Suspect]
     Active Substance: LIDOCAINE\PRILOCAINE
     Indication: LOCAL ANAESTHESIA
     Dosage: UNK
     Route: 061

REACTIONS (3)
  - Incorrect drug administration duration [Unknown]
  - Methaemoglobinaemia [Recovered/Resolved]
  - Overdose [Unknown]
